FAERS Safety Report 11623704 (Version 1)
Quarter: 2015Q4

REPORT INFORMATION
  Report Type: Spontaneous
  Country: US (occurrence: US)
  Receive Date: 20151013
  Receipt Date: 20151013
  Transmission Date: 20160304
  Serious: No
  Sender: FDA-Public Use
  Company Number: US-JNJFOC-20150903800

PATIENT
  Age: 68 Year
  Sex: Female
  Weight: 66 kg

DRUGS (10)
  1. TYLENOL WITH CODEINE [Suspect]
     Active Substance: ACETAMINOPHEN\CODEINE PHOSPHATE
     Indication: PROCEDURAL PAIN
     Route: 048
     Dates: start: 200806
  2. FLUOXETINE [Suspect]
     Active Substance: FLUOXETINE HYDROCHLORIDE
     Indication: DEPRESSION
     Dosage: TAKING FOR 20 YRS
     Route: 048
  3. PANTOPRAZOLE [Suspect]
     Active Substance: PANTOPRAZOLE SODIUM
     Indication: GASTRIC ULCER
     Route: 065
     Dates: start: 20150523
  4. GABAPENTIN. [Suspect]
     Active Substance: GABAPENTIN
     Indication: MYOPATHY
     Route: 048
     Dates: start: 20150621
  5. GABAPENTIN. [Suspect]
     Active Substance: GABAPENTIN
     Indication: MYOPATHY
     Route: 048
     Dates: start: 2011
  6. DIAZEPAM. [Suspect]
     Active Substance: DIAZEPAM
     Indication: PANIC ATTACK
     Route: 048
     Dates: start: 2012
  7. QUETIAPINE [Suspect]
     Active Substance: QUETIAPINE
     Indication: SLEEP DISORDER THERAPY
     Route: 048
     Dates: start: 2005
  8. GABAPENTIN. [Suspect]
     Active Substance: GABAPENTIN
     Indication: NEUROPATHY PERIPHERAL
     Route: 048
     Dates: start: 20150621
  9. GABAPENTIN. [Suspect]
     Active Substance: GABAPENTIN
     Indication: NEUROPATHY PERIPHERAL
     Route: 048
     Dates: start: 2011
  10. HYOSCYAMINE. [Suspect]
     Active Substance: HYOSCYAMINE
     Indication: CONSTIPATION
     Route: 065
     Dates: start: 201306

REACTIONS (2)
  - Fall [Recovered/Resolved with Sequelae]
  - Dizziness [Not Recovered/Not Resolved]

NARRATIVE: CASE EVENT DATE: 20150720
